FAERS Safety Report 4933254-3 (Version None)
Quarter: 2006Q1

REPORT INFORMATION
  Report Type: 
  Country: None (occurrence: None)
  Receive Date: 20060306
  Receipt Date: 20041214
  Transmission Date: 20060701
  Serious: Yes (Hospitalization)
  Sender: FDA-Public Use
  Company Number: US-MERCK-0412USA01976

PATIENT
  Age: 73 Year
  Sex: Male
  Weight: 89 kg

DRUGS (9)
  1. VIOXX [Suspect]
     Indication: ARTHRITIS
     Route: 048
     Dates: start: 20000501, end: 20021101
  2. GLUCOSAMINE [Concomitant]
     Route: 065
  3. TICLID [Concomitant]
     Route: 065
  4. HYTRIN [Concomitant]
     Route: 065
  5. NORVASC [Concomitant]
     Route: 065
  6. GLYBURIDE [Concomitant]
     Route: 065
  7. ATENOLOL [Concomitant]
     Route: 065
  8. CEPHALEXIN [Concomitant]
     Route: 065
  9. PRINIVIL [Concomitant]
     Route: 065

REACTIONS (17)
  - AORTIC ARTERIOSCLEROSIS [None]
  - ARTHROPATHY [None]
  - ATRIAL FIBRILLATION [None]
  - BUNDLE BRANCH BLOCK RIGHT [None]
  - CARDIAC ANEURYSM [None]
  - CARDIAC FAILURE CONGESTIVE [None]
  - CEREBROVASCULAR ACCIDENT [None]
  - CORONARY ARTERY DISEASE [None]
  - HAEMATURIA [None]
  - INCONTINENCE [None]
  - MYOCARDIAL INFARCTION [None]
  - PROSTATE CANCER [None]
  - PULMONARY HYPERTENSION [None]
  - PYREXIA [None]
  - RENAL FAILURE ACUTE [None]
  - STAPHYLOCOCCAL SEPSIS [None]
  - TRICUSPID VALVE INCOMPETENCE [None]
